FAERS Safety Report 23128907 (Version 1)
Quarter: 2023Q4

REPORT INFORMATION
  Report Type: Spontaneous
  Country: US (occurrence: None)
  Receive Date: 20231030
  Receipt Date: 20231030
  Transmission Date: 20240109
  Serious: Yes (Hospitalization)
  Sender: FDA-Public Use
  Company Number: None

PATIENT
  Sex: Male

DRUGS (26)
  1. HUMIRA [Suspect]
     Active Substance: ADALIMUMAB
     Indication: Crohn^s disease
     Dosage: OTHER QUANTITY : 40MG/0.4ML;?FREQUENCY : WEEKLY;?
     Route: 058
     Dates: start: 20211109
  2. FLUTICASONE POW PROPIONA [Concomitant]
  3. LOMOTIL [Concomitant]
  4. MECLIZINE CHW [Concomitant]
  5. NADOLOL [Concomitant]
     Active Substance: NADOLOL
  6. OMEPRAZOLE [Concomitant]
     Active Substance: OMEPRAZOLE
  7. ONDANSETRON [Concomitant]
     Active Substance: ONDANSETRON
  8. PENTASA [Concomitant]
     Active Substance: MESALAMINE
  9. PREDNISONE [Concomitant]
     Active Substance: PREDNISONE
  10. PROAIR HFA AER [Concomitant]
  11. PYRIDOXINE [Concomitant]
     Active Substance: PYRIDOXINE
  12. VITAMIN D CHW [Concomitant]
  13. WARFARIN [Concomitant]
     Active Substance: WARFARIN
  14. ZYRTEC ALLGY [Concomitant]
  15. LOMOTIL [Concomitant]
     Active Substance: ATROPINE SULFATE\DIPHENOXYLATE HYDROCHLORIDE
  16. MECLIZINE CHW [Concomitant]
  17. NADOLOL [Concomitant]
     Active Substance: NADOLOL
  18. OMEPRAZOLE [Concomitant]
     Active Substance: OMEPRAZOLE
  19. ONDANSETRON [Concomitant]
     Active Substance: ONDANSETRON
  20. PENTASA CR [Concomitant]
  21. PREDNISONE [Concomitant]
     Active Substance: PREDNISONE
  22. PROAIR HFA AER [Concomitant]
  23. PYRIDOXINE [Concomitant]
     Active Substance: PYRIDOXINE
  24. VITAMIN D CHW [Concomitant]
  25. WARFARIN [Concomitant]
     Active Substance: WARFARIN
  26. ZYRTEC ALLGY [Concomitant]

REACTIONS (1)
  - Hospitalisation [None]
